FAERS Safety Report 5977375-5 (Version None)
Quarter: 2008Q4

REPORT INFORMATION
  Report Type: 
  Country: None (occurrence: None)
  Receive Date: 20081203
  Receipt Date: 20081125
  Transmission Date: 20090506
  Serious: Yes (Disabling)
  Sender: FDA-Public Use
  Company Number: PHHY2008GB09168

PATIENT
  Age: 46 Year

DRUGS (5)
  1. CARBAMAZEPINE [Suspect]
     Indication: EPILEPSY
     Dosage: 400 MG, QD
     Route: 048
  2. GABAPENTIN [Suspect]
     Indication: EPILEPSY
     Dosage: 900 MG, BID
     Route: 048
  3. LAMOTRIGINE [Suspect]
     Indication: EPILEPSY
     Dosage: 200 MG, BID
     Route: 048
  4. TOPAMAX [Suspect]
     Indication: EPILEPSY
     Dosage: 100 MG, BID
  5. ACETAMINOPHEN [Concomitant]

REACTIONS (3)
  - MACULOPATHY [None]
  - RETINAL DEPOSITS [None]
  - VISUAL ACUITY REDUCED [None]
